FAERS Safety Report 5626439-4 (Version None)
Quarter: 2008Q1

REPORT INFORMATION
  Report Type: 
  Country: None (occurrence: None)
  Receive Date: 20080214
  Receipt Date: 20080206
  Transmission Date: 20080703
  Serious: Yes (Hospitalization)
  Sender: FDA-Public Use
  Company Number: US-JNJFOC-20080202075

PATIENT
  Sex: Female
  Weight: 54.7 kg

DRUGS (3)
  1. DURAGESIC-100 [Suspect]
     Indication: PAIN
     Route: 062
  2. CHANTIX [Suspect]
     Indication: EX-SMOKER
     Route: 048
  3. OXYCODONE HCL [Concomitant]
     Indication: BREAKTHROUGH PAIN
     Route: 048

REACTIONS (4)
  - MALAISE [None]
  - MENOPAUSE [None]
  - THYROID NEOPLASM [None]
  - TIC [None]
